FAERS Safety Report 4391632-8 (Version None)
Quarter: 2004Q3

REPORT INFORMATION
  Report Type: 
  Country: None (occurrence: None)
  Receive Date: 20040701
  Receipt Date: 20040616
  Transmission Date: 20050211
  Serious: Yes (Life-Threatening, Hospitalization, Disabling, Other)
  Sender: FDA-Public Use
  Company Number: 2004-0007167

PATIENT
  Age: 26 Year
  Sex: Female
  Weight: 71.6683 kg

DRUGS (5)
  1. VIREAD [Suspect]
     Indication: HIV INFECTION
     Dosage: 300 MG, 1 IN 1 D, ORAL
     Route: 048
     Dates: start: 20030707, end: 20031203
  2. LAMIVUDINE (LAMIVUDINE) [Suspect]
     Indication: HIV INFECTION
     Dosage: 1 IN 1 D, ORAL
     Route: 048
     Dates: start: 20000628, end: 20031203
  3. ABACAVIR (ABACAVIR) [Concomitant]
  4. SYNTHROID [Concomitant]
  5. DEPO-PROVERA [Concomitant]

REACTIONS (12)
  - CHOLANGITIS [None]
  - CHOLELITHIASIS [None]
  - COUGH [None]
  - DIZZINESS [None]
  - FAT ATROPHY [None]
  - FLUSHING [None]
  - HEPATIC FAILURE [None]
  - HEPATIC NECROSIS [None]
  - HEPATITIS [None]
  - LIPID METABOLISM DISORDER [None]
  - NEPHROLITHIASIS [None]
  - NIGHTMARE [None]
